FAERS Safety Report 5834537-5 (Version None)
Quarter: 2008Q3

REPORT INFORMATION
  Report Type: 
  Country: None (occurrence: None)
  Receive Date: 20080805
  Receipt Date: 20080729
  Transmission Date: 20090109
  Serious: Yes (Disabling, Other)
  Sender: FDA-Public Use
  Company Number: US-BAXTER-2008BH002926

PATIENT
  Age: 4 Year
  Sex: Male
  Weight: 10 kg

DRUGS (3)
  1. HEPARIN SODIUM INJECTION [Suspect]
     Indication: PROPHYLAXIS
     Dosage: DOSE UNIT:UNKNOWN
     Route: 061
     Dates: start: 20071213, end: 20071213
  2. HEPARIN SODIUM INJECTION [Suspect]
     Indication: OFF LABEL USE
     Dosage: DOSE UNIT:UNKNOWN
     Route: 061
     Dates: start: 20071213, end: 20071213
  3. PREDNISOLONE ACETATE [Concomitant]
     Indication: CATARACT
     Route: 031
     Dates: start: 20071025

REACTIONS (3)
  - BLINDNESS [None]
  - EYE INFLAMMATION [None]
  - PAIN [None]
